FAERS Safety Report 5943436-X (Version None)
Quarter: 2008Q4

REPORT INFORMATION
  Report Type: 
  Country: None (occurrence: None)
  Receive Date: 20081105
  Receipt Date: 20081105
  Transmission Date: 20090506
  Serious: No
  Sender: FDA-Public Use
  Company Number: None

PATIENT
  Sex: Female

DRUGS (2)
  1. LOVENOX [Suspect]
     Indication: CEREBROVASCULAR ACCIDENT
     Dosage: 75MG BID SQ
     Route: 058
     Dates: start: 20080926, end: 20080927
  2. LOVENOX [Suspect]
     Indication: THROMBOSIS PROPHYLAXIS
     Dosage: 40MG QD SQ
     Route: 058
     Dates: start: 20080929, end: 20081006

REACTIONS (2)
  - HEPARIN-INDUCED THROMBOCYTOPENIA [None]
  - LEG AMPUTATION [None]
